FAERS Safety Report 11104245 (Version 3)
Quarter: 2015Q3

REPORT INFORMATION
  Report Type: Report from Study
  Country: JP (occurrence: JP)
  Receive Date: 20150511
  Receipt Date: 20150909
  Transmission Date: 20151125
  Serious: Yes (Hospitalization)
  Sender: FDA-Public Use
  Company Number: JP-BAYER-2015-202047

PATIENT
  Age: 64 Year
  Sex: Male
  Weight: 57 kg

DRUGS (9)
  1. AZILSARTAN [Concomitant]
     Active Substance: AZILSARTAN KAMEDOXOMIL
     Indication: CARDIOVASCULAR EVENT PROPHYLAXIS
     Dosage: DAILY DOSE 20 MG
     Route: 048
     Dates: start: 20141204
  2. BIO-THREE [Concomitant]
     Active Substance: HERBALS
     Indication: PROPHYLAXIS AGAINST DIARRHOEA
     Dosage: UNK, QS
     Route: 048
     Dates: start: 20130311
  3. LOXONIN [Concomitant]
     Active Substance: LOXOPROFEN SODIUM
     Indication: PAIN PROPHYLAXIS
     Dosage: DAILY DOSE 180 MG
     Route: 048
     Dates: start: 20130311
  4. STIVARGA [Suspect]
     Active Substance: REGORAFENIB
     Indication: RECTAL CANCER
     Dosage: 120 MG, QD (ON FOR 3 WEEKS AND OFF FOR 1 WEEK)
     Route: 048
     Dates: start: 20150205, end: 20150304
  5. STIVARGA [Suspect]
     Active Substance: REGORAFENIB
     Indication: RECTAL CANCER
     Dosage: 120 MG, QD (ON FOR 3 WEEKS AND OFF FOR 1 WEEK)
     Route: 048
     Dates: start: 20150408, end: 20150428
  6. ANTEBATE [Concomitant]
     Active Substance: BETAMETHASONE DIPROPIONATE
     Indication: PALMAR-PLANTAR ERYTHRODYSAESTHESIA SYNDROME
  7. ALLELOCK [Concomitant]
     Active Substance: OLOPATADINE HYDROCHLORIDE
     Indication: PROPHYLAXIS
     Dosage: DAILY DOSE 10 MG
     Route: 048
     Dates: start: 20121015
  8. STIVARGA [Suspect]
     Active Substance: REGORAFENIB
     Indication: RECTAL CANCER
     Dosage: 120 MG, QD (ON FOR 3 WEEKS AND OFF FOR 1 WEEK)
     Route: 048
     Dates: start: 20150309, end: 20150329
  9. ANTEBATE [Concomitant]
     Active Substance: BETAMETHASONE DIPROPIONATE
     Indication: DRUG TOXICITY PROPHYLAXIS
     Dosage: UNK
     Route: 061
     Dates: start: 20150205

REACTIONS (2)
  - Palmar-plantar erythrodysaesthesia syndrome [Recovered/Resolved]
  - Cerebral infarction [Recovered/Resolved]

NARRATIVE: CASE EVENT DATE: 20150219
